FAERS Safety Report 15939493 (Version 1)
Quarter: 2019Q1

REPORT INFORMATION
  Report Type: Spontaneous
  Country: CN (occurrence: CN)
  Receive Date: 20190208
  Receipt Date: 20190208
  Transmission Date: 20190417
  Serious: Yes (Life-Threatening, Hospitalization, Other)
  Sender: FDA-Public Use
  Company Number: CN-SAKK-2019SA027454AA

PATIENT
  Age: 85 Year
  Sex: Male
  Weight: 45 kg

DRUGS (11)
  1. SODIUM CHLORIDE. [Concomitant]
     Active Substance: SODIUM CHLORIDE
     Dosage: 50 ML, QD
     Route: 041
     Dates: start: 20181203, end: 20181203
  2. RABEPRAZOLE [Concomitant]
     Active Substance: RABEPRAZOLE
     Indication: GASTRITIS
     Dosage: 10 ML, BID
     Route: 041
  3. SOMATOSTATIN [Suspect]
     Active Substance: SOMATOSTATIN
  4. NADROPARIN CALCIUM [Suspect]
     Active Substance: NADROPARIN CALCIUM
     Indication: ACUTE CORONARY SYNDROME
     Dosage: 3075 IU, BID
     Route: 058
     Dates: start: 20181201, end: 20181203
  5. BIVALIRUDIN. [Suspect]
     Active Substance: BIVALIRUDIN
     Indication: ACUTE CORONARY SYNDROME
     Dosage: 0.25 MG, QD
     Route: 041
     Dates: start: 20181201, end: 20181203
  6. SODIUM CHLORIDE. [Concomitant]
     Active Substance: SODIUM CHLORIDE
     Dosage: 250 ML, QD
     Route: 041
     Dates: start: 20181201, end: 20181203
  7. PLAVIX [Suspect]
     Active Substance: CLOPIDOGREL BISULFATE
     Indication: PLATELET AGGREGATION
  8. ACETYLSALICYLIC ACID [Suspect]
     Active Substance: ASPIRIN
     Indication: ACUTE CORONARY SYNDROME
     Dosage: 0.1 G, QD
     Route: 048
     Dates: start: 20181201, end: 20181203
  9. PLAVIX [Suspect]
     Active Substance: CLOPIDOGREL BISULFATE
     Indication: ACUTE CORONARY SYNDROME
     Dosage: 75 MG, QD
     Route: 048
     Dates: start: 20181201, end: 20181203
  10. STERILE WATER [Concomitant]
     Active Substance: WATER
     Dosage: 0.5 ML, QD
     Route: 058
     Dates: start: 20181201, end: 20181203
  11. SALVIANOLATE [Suspect]
     Active Substance: HERBALS
     Indication: ACUTE CORONARY SYNDROME
     Dosage: 200 MG, QD
     Route: 041
     Dates: start: 20181201, end: 20181203

REACTIONS (3)
  - Haematemesis [Not Recovered/Not Resolved]
  - Shock haemorrhagic [Unknown]
  - Gastrointestinal haemorrhage [Not Recovered/Not Resolved]

NARRATIVE: CASE EVENT DATE: 20181203
